FAERS Safety Report 5332880-X (Version None)
Quarter: 2007Q2

REPORT INFORMATION
  Report Type: 
  Country: None (occurrence: None)
  Receive Date: 20070521
  Receipt Date: 20070514
  Transmission Date: 20071010
  Serious: Yes (Other)
  Sender: FDA-Public Use
  Company Number: GXKR2007DE04253

PATIENT
  Sex: Female

DRUGS (2)
  1. FLUOXETINE [Suspect]
     Dosage: ORAL
     Route: 048
  2. ZONEGRAN [Suspect]
     Dosage: ORAL
     Route: 048

REACTIONS (3)
  - DRUG INTERACTION [None]
  - EPILEPSY [None]
  - HEADACHE [None]
